FAERS Safety Report 8029520-8 (Version None)
Quarter: 2012Q1

REPORT INFORMATION
  Report Type: 
  Country: None (occurrence: None)
  Receive Date: 20120109
  Receipt Date: 20111229
  Transmission Date: 20120608
  Serious: No
  Sender: FDA-Public Use
  Company Number: US-BIOGENIDEC-2011BI049041

PATIENT
  Sex: Male

DRUGS (3)
  1. AVONEX [Suspect]
     Indication: MULTIPLE SCLEROSIS
     Route: 030
     Dates: start: 20090701, end: 20110201
  2. AVONEX [Suspect]
     Route: 030
     Dates: start: 19990126, end: 20080126
  3. AVONEX [Suspect]
     Route: 030
     Dates: start: 20111201

REACTIONS (2)
  - MUSCLE ATROPHY [None]
  - BALANCE DISORDER [None]
